FAERS Safety Report 21767191 (Version 2)
Quarter: 2023Q1

REPORT INFORMATION
  Report Type: Spontaneous
  Country: US (occurrence: US)
  Receive Date: 20221222
  Receipt Date: 20230104
  Transmission Date: 20230418
  Serious: No
  Sender: FDA-Public Use
  Company Number: US-Blueprint Medicines Corporation-SP-US-2022-003424

PATIENT
  Age: 70 Year
  Sex: Male

DRUGS (4)
  1. AYVAKIT [Suspect]
     Active Substance: AVAPRITINIB
     Indication: Gastrointestinal stromal tumour
     Dosage: TAKE 1 TABLET BY MOUTH DAILY FOR WEEK 1.
     Route: 048
     Dates: start: 20221119
  2. AYVAKIT [Suspect]
     Active Substance: AVAPRITINIB
     Dosage: TAKE 2 TABLETS DAILY FOR WEEK 2.
     Route: 048
     Dates: start: 20221119
  3. AYVAKIT [Suspect]
     Active Substance: AVAPRITINIB
     Dosage: TAKE 3 TABLETS DAILY FOR WEEKS 3 AND 4
     Route: 048
     Dates: start: 20221119
  4. AYVAKIT [Suspect]
     Active Substance: AVAPRITINIB
     Route: 048
     Dates: start: 20221119

REACTIONS (6)
  - Lacrimation increased [Not Recovered/Not Resolved]
  - Nasopharyngitis [Not Recovered/Not Resolved]
  - Abdominal distension [Recovering/Resolving]
  - Pain [Not Recovered/Not Resolved]
  - Arthropathy [Not Recovered/Not Resolved]
  - Joint dislocation [Not Recovered/Not Resolved]

NARRATIVE: CASE EVENT DATE: 20221213
